FAERS Safety Report 6139709-0 (Version None)
Quarter: 2009Q1

REPORT INFORMATION
  Report Type: 
  Country: None (occurrence: None)
  Receive Date: 20090330
  Receipt Date: 20080404
  Transmission Date: 20090719
  Serious: Yes (Other)
  Sender: FDA-Public Use
  Company Number: 2009EK000006

PATIENT

DRUGS (2)
  1. CARDENE IV (NICARDIPINE HYDROCHLORIDE IV) [Suspect]
     Indication: VASODILATION PROCEDURE
     Dosage: IV
     Route: 042
  2. PLACEBO (PLACEBO) [Suspect]
     Indication: DRUG USE FOR UNKNOWN INDICATION
     Dosage: IV
     Route: 042

REACTIONS (1)
  - HYPOTENSION [None]
